FAERS Safety Report 23632552 (Version 1)
Quarter: 2024Q1

REPORT INFORMATION
  Report Type: Spontaneous
  Country: PL (occurrence: PL)
  Receive Date: 20240314
  Receipt Date: 20240314
  Transmission Date: 20240410
  Serious: Yes (Hospitalization)
  Sender: FDA-Public Use
  Company Number: None

PATIENT
  Age: 80 Year

DRUGS (2)
  1. IMIPENEM AND CILASTATIN [Suspect]
     Active Substance: CILASTATIN SODIUM\IMIPENEM
     Indication: Pneumonia
     Dosage: THERAPY ONGOING
     Route: 042
     Dates: start: 20210721
  2. CEFTRIAXONE SODIUM [Suspect]
     Active Substance: CEFTRIAXONE SODIUM
     Indication: Acute kidney injury
     Dosage: UNK
     Route: 042
     Dates: start: 20210715, end: 20210721

REACTIONS (4)
  - Oxygen saturation abnormal [Unknown]
  - Diarrhoea [Unknown]
  - Clostridium test positive [Unknown]
  - Abnormal faeces [Unknown]

NARRATIVE: CASE EVENT DATE: 20210720
